FAERS Safety Report 6881992-8 (Version None)
Quarter: 2010Q3

REPORT INFORMATION
  Report Type: 
  Country: None (occurrence: None)
  Receive Date: 20100728
  Receipt Date: 20100728
  Transmission Date: 20110219
  Serious: Yes (Life-Threatening)
  Sender: FDA-Public Use
  Company Number: None

PATIENT
  Sex: Female
  Weight: 69.4 kg

DRUGS (2)
  1. INSULIN ASPART [Suspect]
     Dosage: 10 UNITS ONCE SQ
     Route: 058
     Dates: start: 20100707
  2. DEXTROSE [Suspect]
     Dosage: 12.5 GM ONCE IV
     Route: 042
     Dates: start: 20100707

REACTIONS (4)
  - BLOOD GLUCOSE DECREASED [None]
  - HYPERHIDROSIS [None]
  - SKIN WARM [None]
  - UNRESPONSIVE TO STIMULI [None]
